FAERS Safety Report 18258956 (Version 1)
Quarter: 2020Q3

REPORT INFORMATION
  Report Type: Report from Study
  Country: CA (occurrence: CA)
  Receive Date: 20200911
  Receipt Date: 20200911
  Transmission Date: 20201103
  Serious: Yes (Hospitalization)
  Sender: FDA-Public Use
  Company Number: CA-JNJFOC-20200533015

PATIENT
  Age: 14 Year
  Sex: Male
  Weight: 57.6 kg

DRUGS (1)
  1. REMICADE [Suspect]
     Active Substance: INFLIXIMAB
     Indication: COLITIS ULCERATIVE
     Dosage: THE PATIENT WILL CONTINUE ON TREATMENT WITH INDUCTION 600MG AT WEEKS 1 AND 4 (OFF LABEL USE AND DRUG
     Route: 042
     Dates: start: 20200523

REACTIONS (2)
  - Off label use [Unknown]
  - Product use issue [Unknown]

NARRATIVE: CASE EVENT DATE: 20200523
